APPROVED DRUG PRODUCT: THEOCLEAR-100
Active Ingredient: THEOPHYLLINE
Strength: 100MG
Dosage Form/Route: TABLET;ORAL
Application: A085353 | Product #002
Applicant: CENTRAL PHARMACEUTICALS INC
Approved: Approved Prior to Jan 1, 1982 | RLD: No | RS: No | Type: DISCN